FAERS Safety Report 22529825 (Version 1)
Quarter: 2023Q2

REPORT INFORMATION
  Report Type: Spontaneous
  Country: US (occurrence: None)
  Receive Date: 20230605
  Receipt Date: 20230605
  Transmission Date: 20230721
  Serious: Yes (Other)
  Sender: FDA-Public Use
  Company Number: None

PATIENT
  Age: 87 Year
  Sex: Male

DRUGS (1)
  1. QUTENZA [Suspect]
     Active Substance: CAPSAICIN
     Dosage: OTHER FREQUENCY : Q 90 DAYS;?
     Route: 061
     Dates: start: 20230321

REACTIONS (1)
  - Application site pain [None]

NARRATIVE: CASE EVENT DATE: 20230403
